FAERS Safety Report 8346078-4 (Version None)
Quarter: 2012Q2

REPORT INFORMATION
  Report Type: 
  Country: None (occurrence: None)
  Receive Date: 20120507
  Receipt Date: 20120426
  Transmission Date: 20120825
  Serious: Yes (Hospitalization)
  Sender: FDA-Public Use
  Company Number: 0226034

PATIENT
  Age: 61 Year
  Sex: Female

DRUGS (6)
  1. TACHOSIL [Suspect]
     Indication: HAEMOSTASIS
     Dosage: 2 DOSAGE FORMS APPLICATION ON CUT EDGES OF STERNUM
     Dates: start: 20110607
  2. ZOCOR [Concomitant]
  3. ASPIRIN [Concomitant]
  4. OMEPRAZOLE [Concomitant]
  5. ZESTRIL [Concomitant]
  6. BISOPROLOL FUMARATE [Concomitant]

REACTIONS (6)
  - POSTOPERATIVE THORACIC PROCEDURE COMPLICATION [None]
  - OFF LABEL USE [None]
  - SUBCUTANEOUS ABSCESS [None]
  - GRANULOMA [None]
  - STAPHYLOCOCCUS TEST POSITIVE [None]
  - IMPAIRED HEALING [None]
